FAERS Safety Report 5933075-9 (Version None)
Quarter: 2008Q4

REPORT INFORMATION
  Report Type: 
  Country: None (occurrence: None)
  Receive Date: 20081023
  Receipt Date: 20081015
  Transmission Date: 20090506
  Serious: Yes (Death)
  Sender: FDA-Public Use
  Company Number: A-US2004-07615

PATIENT
  Age: 57 Year
  Sex: Female

DRUGS (1)
  1. TRACLEER [Suspect]
     Indication: PULMONARY ARTERIAL HYPERTENSION
     Dosage: ORAL
     Route: 048
     Dates: start: 20080328

REACTIONS (4)
  - COUGH [None]
  - DRUG INEFFECTIVE [None]
  - FEELING ABNORMAL [None]
  - RASH [None]
